FAERS Safety Report 19875805 (Version 2)
Quarter: 2021Q4

REPORT INFORMATION
  Report Type: Report from Study
  Country: JP (occurrence: JP)
  Receive Date: 20210924
  Receipt Date: 20211116
  Transmission Date: 20220303
  Serious: Yes (Hospitalization, Other)
  Sender: FDA-Public Use
  Company Number: JP-SAKK-2021SA310344AA

PATIENT
  Age: 71 Year
  Sex: Male
  Weight: 71.2 kg

DRUGS (21)
  1. ALEMTUZUMAB [Suspect]
     Active Substance: ALEMTUZUMAB
     Indication: Chronic lymphocytic leukaemia
     Dosage: 10 MG
     Route: 041
     Dates: start: 20191127, end: 20191128
  2. ALEMTUZUMAB [Suspect]
     Active Substance: ALEMTUZUMAB
     Dosage: 3 MG
     Route: 041
     Dates: start: 20191125, end: 20191126
  3. ALEMTUZUMAB [Suspect]
     Active Substance: ALEMTUZUMAB
     Dosage: 10 MG
     Route: 041
     Dates: start: 20191202, end: 20191203
  4. ALEMTUZUMAB [Suspect]
     Active Substance: ALEMTUZUMAB
     Dosage: 30 MG, TIW
     Route: 041
     Dates: start: 20191204, end: 20191225
  5. POLARAMINE [Concomitant]
     Active Substance: DEXCHLORPHENIRAMINE MALEATE
     Indication: Prophylaxis
     Dosage: 4 MG, QD
     Route: 048
     Dates: start: 20191125, end: 20191127
  6. POLARAMINE [Concomitant]
     Active Substance: DEXCHLORPHENIRAMINE MALEATE
     Dosage: 4 MG, QD
     Route: 048
     Dates: start: 20191202, end: 20191204
  7. POLARAMINE [Concomitant]
     Active Substance: DEXCHLORPHENIRAMINE MALEATE
     Dosage: 4 MG, QD
     Route: 048
     Dates: start: 20191206, end: 20191206
  8. POLARAMINE [Concomitant]
     Active Substance: DEXCHLORPHENIRAMINE MALEATE
     Dosage: 4 MG, QOD
     Route: 048
     Dates: start: 20191209, end: 20191213
  9. POLARAMINE [Concomitant]
     Active Substance: DEXCHLORPHENIRAMINE MALEATE
     Dosage: 4 MG, QOD
     Route: 048
     Dates: start: 20191216, end: 20191220
  10. POLARAMINE [Concomitant]
     Active Substance: DEXCHLORPHENIRAMINE MALEATE
     Dosage: 4 MG, QOD
     Route: 048
     Dates: start: 20191223, end: 20191225
  11. CALONAL [Concomitant]
     Active Substance: ACETAMINOPHEN
     Indication: Prophylaxis
     Dosage: 1000 MG, QD
     Route: 048
     Dates: start: 20191125, end: 20191127
  12. CALONAL [Concomitant]
     Active Substance: ACETAMINOPHEN
     Dosage: 1000 MG, QD
     Route: 048
     Dates: start: 20191202, end: 20191204
  13. CALONAL [Concomitant]
     Active Substance: ACETAMINOPHEN
     Dosage: 1000 MG, QD
     Route: 048
     Dates: start: 20191206, end: 20191206
  14. CALONAL [Concomitant]
     Active Substance: ACETAMINOPHEN
     Dosage: 1000 MG, QOD
     Route: 048
     Dates: start: 20191209, end: 20191213
  15. CALONAL [Concomitant]
     Active Substance: ACETAMINOPHEN
     Dosage: 1000 MG, QOD
     Route: 048
     Dates: start: 20191216, end: 20191220
  16. CALONAL [Concomitant]
     Active Substance: ACETAMINOPHEN
     Dosage: 1000 MG, QOD
     Route: 048
     Dates: start: 20191223, end: 20191225
  17. SULFAMETHOXAZOLE\TRIMETHOPRIM [Concomitant]
     Active Substance: SULFAMETHOXAZOLE\TRIMETHOPRIM
     Indication: Infection prophylaxis
     Dosage: 1 DF, QD
     Route: 048
     Dates: start: 20191125
  18. VALTREX [Concomitant]
     Active Substance: VALACYCLOVIR HYDROCHLORIDE
     Indication: Infection prophylaxis
     Dosage: 500 MG, QD
     Route: 048
     Dates: start: 20191125
  19. SAXIZON [Concomitant]
     Active Substance: HYDROCORTISONE SODIUM SUCCINATE
     Indication: Prophylaxis
     Dosage: 200 MG, QD
     Route: 042
     Dates: start: 20191125, end: 20191128
  20. SAXIZON [Concomitant]
     Active Substance: HYDROCORTISONE SODIUM SUCCINATE
     Dosage: 200 MG, QD
     Route: 042
     Dates: start: 20191202, end: 20191204
  21. SAXIZON [Concomitant]
     Active Substance: HYDROCORTISONE SODIUM SUCCINATE
     Dosage: 200 MG, QD
     Route: 042
     Dates: start: 20191206, end: 20191206

REACTIONS (6)
  - Neutrophil count decreased [Recovering/Resolving]
  - Febrile neutropenia [Recovering/Resolving]
  - Infection [Recovering/Resolving]
  - Cytomegalovirus viraemia [Recovering/Resolving]
  - Platelet count decreased [Recovered/Resolved]
  - Urticaria [Recovered/Resolved]

NARRATIVE: CASE EVENT DATE: 20191129
